FAERS Safety Report 6413347-4 (Version None)
Quarter: 2009Q4

REPORT INFORMATION
  Report Type: 
  Country: None (occurrence: None)
  Receive Date: 20091026
  Receipt Date: 20091021
  Transmission Date: 20100525
  Serious: Yes (Other)
  Sender: FDA-Public Use
  Company Number: CA-ROCHE-663653

PATIENT
  Age: 6 Year
  Sex: Female
  Weight: 26 kg

DRUGS (3)
  1. CEFTRIAXONE SODIUM [Suspect]
     Indication: DRUG USE FOR UNKNOWN INDICATION
     Dosage: FREQUENCY:- FIRST DOSE
     Route: 065
  2. AMOXICILLIN [Concomitant]
     Route: 048
  3. IBUPROFEN [Concomitant]
     Route: 048

REACTIONS (2)
  - URTICARIA [None]
  - WHEEZING [None]
